FAERS Safety Report 6457271-X (Version None)
Quarter: 2009Q4

REPORT INFORMATION
  Report Type: 
  Country: None (occurrence: None)
  Receive Date: 20091125
  Receipt Date: 20091116
  Transmission Date: 20100525
  Serious: Yes (Other)
  Sender: FDA-Public Use
  Company Number: FR-PFIZER INC-2009282341

PATIENT
  Age: 65 Year
  Sex: Male
  Weight: 86 kg

DRUGS (2)
  1. TAHOR [Suspect]
     Dosage: 80 MG, UNK
     Route: 048
     Dates: start: 20091007, end: 20091010
  2. ATENOLOL [Concomitant]
     Dosage: UNK

REACTIONS (3)
  - DIARRHOEA [None]
  - PRURITUS [None]
  - URTICARIA [None]
